FAERS Safety Report 23233656 (Version 1)
Quarter: 2023Q4

REPORT INFORMATION
  Report Type: Spontaneous
  Country: US (occurrence: US)
  Receive Date: 20231128
  Receipt Date: 20231128
  Transmission Date: 20240109
  Serious: Yes (Hospitalization, Other)
  Sender: FDA-Public Use
  Company Number: US-JUBILANT CADISTA PHARMACEUTICALS-2023US001482

PATIENT
  Age: 56 Year
  Sex: Female

DRUGS (1)
  1. VALACYCLOVIR [Suspect]
     Active Substance: VALACYCLOVIR HYDROCHLORIDE
     Indication: Genital herpes
     Dosage: 500 MG, 2 TIMES PER DAY

REACTIONS (14)
  - Neurotoxicity [Recovered/Resolved]
  - Mental status changes [Recovered/Resolved]
  - Headache [Recovered/Resolved]
  - Dizziness [Recovered/Resolved]
  - Vomiting [Recovered/Resolved]
  - Abdominal pain [Recovered/Resolved]
  - Paraesthesia [Recovered/Resolved]
  - Hallucination [Recovered/Resolved]
  - Gait disturbance [Recovered/Resolved]
  - Amnesia [Recovered/Resolved]
  - Diet refusal [Recovered/Resolved]
  - Oppositional defiant disorder [Recovered/Resolved]
  - Aggression [Recovered/Resolved]
  - Encephalopathy [Recovered/Resolved]
